FAERS Safety Report 16062551 (Version 1)
Quarter: 2019Q1

REPORT INFORMATION
  Report Type: Spontaneous
  Country: US (occurrence: US)
  Receive Date: 20190212
  Receipt Date: 20190212
  Transmission Date: 20190418
  Serious: No
  Sender: FDA-Public Use
  Company Number: None

PATIENT
  Age: 76 Year
  Sex: Female

DRUGS (1)
  1. COSENTYX [Suspect]
     Active Substance: SECUKINUMAB
     Indication: ANKYLOSING SPONDYLITIS
     Dosage: OTHER
     Route: 058
     Dates: start: 201810

REACTIONS (6)
  - Pain [None]
  - Depression [None]
  - Sleep disorder [None]
  - Anxiety [None]
  - Movement disorder [None]
  - Musculoskeletal stiffness [None]

NARRATIVE: CASE EVENT DATE: 20190212
